FAERS Safety Report 14144789 (Version 4)
Quarter: 2017Q4

REPORT INFORMATION
  Report Type: Spontaneous
  Country: BR (occurrence: BR)
  Receive Date: 20171031
  Receipt Date: 20171208
  Transmission Date: 20180321
  Serious: Yes (Other)
  Sender: FDA-Public Use
  Company Number: PHHY2017BR053619

PATIENT
  Sex: Male
  Weight: 60 kg

DRUGS (3)
  1. EXELON PATCH [Suspect]
     Active Substance: RIVASTIGMINE
     Indication: DEMENTIA ALZHEIMER^S TYPE
     Dosage: 13.3 MG, QD ( PATCH 15 (CM2), 27 MG RIVASTIGMINE BASE)
     Route: 062
     Dates: start: 201701
  2. FLUNARIZINE DIHYDROCHLORIDE [Concomitant]
     Active Substance: FLUNARIZINE HYDROCHLORIDE
     Indication: PRODUCT USED FOR UNKNOWN INDICATION
     Dosage: 1 DF, QD
     Route: 065
  3. RECONTER [Concomitant]
     Active Substance: ESCITALOPRAM OXALATE
     Indication: PRODUCT USED FOR UNKNOWN INDICATION
     Dosage: UNK
     Route: 065

REACTIONS (16)
  - Dizziness [Unknown]
  - Pruritus [Recovering/Resolving]
  - Productive cough [Unknown]
  - Lip swelling [Not Recovered/Not Resolved]
  - Salivary hypersecretion [Unknown]
  - Throat tightness [Unknown]
  - Urinary incontinence [Unknown]
  - Skin swelling [Unknown]
  - Hallucination [Unknown]
  - Product adhesion issue [Unknown]
  - Hepatic cirrhosis [Unknown]
  - Somnolence [Unknown]
  - Anxiety [Unknown]
  - Catarrh [Unknown]
  - Blister [Unknown]
  - Aggression [Unknown]
